FAERS Safety Report 6431719-9 (Version None)
Quarter: 2009Q4

REPORT INFORMATION
  Report Type: 
  Country: None (occurrence: None)
  Receive Date: 20091103
  Receipt Date: 20091019
  Transmission Date: 20100525
  Serious: No
  Sender: FDA-Public Use
  Company Number: 02100-JPN-07-0327

PATIENT
  Age: 61 Year
  Sex: Female
  Weight: 57 kg

DRUGS (10)
  1. PLETAL [Suspect]
     Indication: CEREBRAL INFARCTION
     Dosage: 81 MG, QD, ORAL
     Route: 048
     Dates: start: 20041215
  2. ASPIRIN [Suspect]
  3. GLIMICRON (GLICLAZIDE) [Concomitant]
  4. SAIREI-TO (HERBAL EXTRACTS NOS) [Concomitant]
  5. AMLODIN OD (AMLODIPINE BESILATE) [Concomitant]
  6. MEVALOTIN (MEVALOTIN) [Concomitant]
  7. TRICOR [Concomitant]
  8. KINEDAK (EPALRESTAT) [Concomitant]
  9. SEIBULE (MIGLITOL) [Concomitant]
  10. CETAPRIL (ALACEPRIL) [Concomitant]

REACTIONS (3)
  - BLOOD POTASSIUM INCREASED [None]
  - BLOOD UREA INCREASED [None]
  - DIABETES MELLITUS INADEQUATE CONTROL [None]
